FAERS Safety Report 5867157-7 (Version None)
Quarter: 2008Q3

REPORT INFORMATION
  Report Type: 
  Country: None (occurrence: None)
  Receive Date: 20080829
  Receipt Date: 20080829
  Transmission Date: 20090109
  Serious: Yes (Hospitalization)
  Sender: FDA-Public Use
  Company Number: None

PATIENT
  Age: 73 Year
  Sex: Male

DRUGS (2)
  1. ENOXAPARIN SODIUM [Suspect]
     Indication: DEEP VEIN THROMBOSIS
     Dosage: 90 MG BID SQ
     Route: 058
     Dates: start: 20080809, end: 20080812
  2. WARFARIN SODIUM [Suspect]
     Indication: DEEP VEIN THROMBOSIS
     Dosage: 5 MG AT BEDTIME PO
     Route: 048
     Dates: start: 20080809, end: 20080812

REACTIONS (1)
  - HEPATIC ENZYME INCREASED [None]
